FAERS Safety Report 22607343 (Version 1)
Quarter: 2023Q2

REPORT INFORMATION
  Report Type: Report from Study
  Country: CA (occurrence: CA)
  Receive Date: 20230616
  Receipt Date: 20230616
  Transmission Date: 20230721
  Serious: Yes (Other)
  Sender: FDA-Public Use
  Company Number: CA-ABBVIE-5289555

PATIENT
  Sex: Male

DRUGS (1)
  1. RINVOQ [Suspect]
     Active Substance: UPADACITINIB
     Indication: Psoriatic arthropathy
     Dosage: STRENGTH: 15 MG
     Route: 048
     Dates: start: 20230519

REACTIONS (9)
  - Asphyxia [Unknown]
  - Dyspnoea [Unknown]
  - Fear of falling [Unknown]
  - Fatigue [Unknown]
  - Sleep disorder [Unknown]
  - Headache [Unknown]
  - Chromaturia [Unknown]
  - Cough [Unknown]
  - Nausea [Unknown]

NARRATIVE: CASE EVENT DATE: 20230101
